FAERS Safety Report 10982697 (Version 1)
Quarter: 2015Q1

REPORT INFORMATION
  Report Type: Spontaneous
  Country: US (occurrence: None)
  Receive Date: 20150302
  Receipt Date: 20150302
  Transmission Date: 20150721
  Serious: Yes (Other)
  Sender: FDA-Public Use
  Company Number: M2014-009C

PATIENT
  Age: 8 Year
  Sex: Female

DRUGS (4)
  1. CANDIDA ALBICANS. [Suspect]
     Active Substance: CANDIDA ALBICANS
     Indication: OFF LABEL USE
     Dosage: 0.1CC/INJECTION
     Dates: start: 20140707
  2. NORMAL SALINE [Suspect]
     Active Substance: SODIUM CHLORIDE
     Indication: OFF LABEL USE
     Dates: start: 20140707
  3. NORMAL SALINE [Suspect]
     Active Substance: SODIUM CHLORIDE
     Indication: SKIN PAPILLOMA
     Dates: start: 20140707
  4. CANDIDA ALBICANS. [Suspect]
     Active Substance: CANDIDA ALBICANS
     Indication: SKIN PAPILLOMA
     Dosage: 0.1CC/INJECTION
     Dates: start: 20140707

REACTIONS (3)
  - Local reaction [None]
  - Injection site swelling [None]
  - Injection site erythema [None]

NARRATIVE: CASE EVENT DATE: 20140805
